FAERS Safety Report 14751790 (Version 2)
Quarter: 2018Q2

REPORT INFORMATION
  Report Type: Spontaneous
  Country: BR (occurrence: BR)
  Receive Date: 20180412
  Receipt Date: 20180530
  Transmission Date: 20180711
  Serious: Yes (Other)
  Sender: FDA-Public Use
  Company Number: BR-PFIZER INC-2018145891

PATIENT
  Sex: Male

DRUGS (3)
  1. FRONTAL [Suspect]
     Active Substance: ALPRAZOLAM
     Dosage: TOGETHER WAS 3 MG, 3X/DAY
  2. QUETIAPINE. [Concomitant]
     Active Substance: QUETIAPINE
     Indication: INSOMNIA
     Dosage: UNK
  3. FRONTAL XR [Suspect]
     Active Substance: ALPRAZOLAM
     Dosage: 1 MG, 2X/DAY (ONE TABLET IN THE MORNING AND ONE IN THE AFTERNOON)

REACTIONS (8)
  - Somnolence [Unknown]
  - Blood pressure abnormal [Unknown]
  - Extrasystoles [Unknown]
  - Drug withdrawal syndrome [Unknown]
  - Arrhythmia [Unknown]
  - Tachycardia [Unknown]
  - Agitation [Unknown]
  - Anxiety [Unknown]
